FAERS Safety Report 5844368-8 (Version None)
Quarter: 2008Q3

REPORT INFORMATION
  Report Type: 
  Country: None (occurrence: None)
  Receive Date: 20080808
  Receipt Date: 20080728
  Transmission Date: 20090109
  Serious: Yes (Death)
  Sender: FDA-Public Use
  Company Number: FABR-1000339

PATIENT
  Age: 57 Year
  Sex: Male
  Weight: 55.0213 kg

DRUGS (1)
  1. FABRAZYME [Suspect]
     Indication: FABRY'S DISEASE
     Dosage: 55 MG, Q2W, INTRAVENOUS
     Route: 042
     Dates: start: 20061006, end: 20080710

REACTIONS (1)
  - DEATH [None]
